FAERS Safety Report 25123978 (Version 1)
Quarter: 2025Q1

REPORT INFORMATION
  Report Type: Spontaneous
  Country: US (occurrence: US)
  Receive Date: 20250326
  Receipt Date: 20250326
  Transmission Date: 20250409
  Serious: No
  Sender: ABBVIE
  Company Number: US-ABBVIE-6188963

PATIENT
  Age: 33 Year
  Sex: Female

DRUGS (2)
  1. VRAYLAR [Suspect]
     Active Substance: CARIPRAZINE
     Indication: Bipolar disorder
     Route: 048
     Dates: start: 2020, end: 2022
  2. VRAYLAR [Suspect]
     Active Substance: CARIPRAZINE
     Indication: Bipolar disorder
     Route: 048
     Dates: start: 2022

REACTIONS (4)
  - Amenorrhoea [Unknown]
  - Weight increased [Recovered/Resolved with Sequelae]
  - Blood prolactin increased [Unknown]
  - Increased appetite [Recovered/Resolved with Sequelae]

NARRATIVE: CASE EVENT DATE: 20221006
